FAERS Safety Report 9886652 (Version 3)
Quarter: 2014Q1

REPORT INFORMATION
  Report Type: Spontaneous
  Country: IT (occurrence: IT)
  Receive Date: 20140210
  Receipt Date: 20140324
  Transmission Date: 20141002
  Serious: Yes (Hospitalization)
  Sender: FDA-Public Use
  Company Number: PHHY2014IT015257

PATIENT
  Age: 5 Year
  Sex: Female

DRUGS (3)
  1. EXJADE [Suspect]
     Indication: IRON OVERLOAD
     Dosage: UNK UKN, UNK
     Route: 048
     Dates: start: 2010
  2. EXJADE [Suspect]
     Dosage: 30 MG/KG, DAY
     Route: 048
     Dates: start: 20131020, end: 20140123
  3. LANSOPRAZOLE [Concomitant]
     Dosage: 20 MG, UNK
     Route: 048

REACTIONS (9)
  - Metabolic acidosis [Recovered/Resolved]
  - Hepatic failure [Recovered/Resolved]
  - Abdominal pain [Recovering/Resolving]
  - Vomiting [Recovering/Resolving]
  - Sopor [Recovering/Resolving]
  - Cardiac murmur [Recovering/Resolving]
  - Cardiac murmur functional [Recovering/Resolving]
  - General physical health deterioration [Recovering/Resolving]
  - Hypertension [Recovering/Resolving]
